FAERS Safety Report 10662192 (Version 1)
Quarter: 2014Q4

REPORT INFORMATION
  Report Type: Spontaneous
  Country: DE (occurrence: DE)
  Receive Date: 20141218
  Receipt Date: 20141218
  Transmission Date: 20150529
  Serious: Yes (Other)
  Sender: FDA-Public Use
  Company Number: DE-TEVA-527842GER

PATIENT
  Age: 49 Year
  Sex: Male

DRUGS (1)
  1. TERBINAFIN [Suspect]
     Active Substance: TERBINAFINE
     Indication: ONYCHOMYCOSIS
     Dates: start: 201207, end: 201209

REACTIONS (3)
  - Lyme disease [Recovered/Resolved]
  - Loss of libido [Recovered/Resolved]
  - Type 1 diabetes mellitus [Recovered/Resolved with Sequelae]

NARRATIVE: CASE EVENT DATE: 20120901
